FAERS Safety Report 8476766-0 (Version None)
Quarter: 2012Q2

REPORT INFORMATION
  Report Type: 
  Country: None (occurrence: None)
  Receive Date: 20120628
  Receipt Date: 20120626
  Transmission Date: 20120825
  Serious: Yes (Death, Hospitalization)
  Sender: FDA-Public Use
  Company Number: US-MERCK-1201USA02548

PATIENT
  Age: 72 Year
  Sex: Female
  Weight: 95 kg

DRUGS (11)
  1. VITAMINS (UNSPECIFIED) [Concomitant]
     Route: 065
  2. MOBIC [Concomitant]
     Indication: ARTHRALGIA
     Route: 065
     Dates: start: 20020101, end: 20091201
  3. ALENDRONATE SODIUM [Suspect]
     Route: 048
     Dates: start: 20080825, end: 20100101
  4. FOSAMAX [Suspect]
     Indication: OSTEOPOROSIS
     Route: 048
     Dates: start: 20020101, end: 20080301
  5. CALCIUM (UNSPECIFIED) [Concomitant]
     Route: 065
  6. ALENDRONATE SODIUM [Suspect]
     Indication: OSTEOPOROSIS
     Route: 048
     Dates: start: 20080314, end: 20080825
  7. KLOR-CON [Concomitant]
     Indication: BLOOD POTASSIUM
     Route: 065
     Dates: start: 20020301, end: 20091201
  8. ZAROXOLYN [Concomitant]
     Indication: HYPERTENSION
     Route: 065
     Dates: start: 20020101, end: 20091201
  9. FUROSEMIDE [Concomitant]
     Indication: HYPERTENSION
     Route: 065
     Dates: start: 20020101, end: 20091201
  10. PAXIL [Concomitant]
     Indication: DEPRESSION
     Route: 065
     Dates: start: 20020301, end: 20091201
  11. ZONALON [Concomitant]
     Indication: ECZEMA
     Route: 065
     Dates: start: 20020401, end: 20081201

REACTIONS (16)
  - OSTEOPENIA [None]
  - GOUT [None]
  - EYE INFLAMMATION [None]
  - ARTHROPATHY [None]
  - FEMUR FRACTURE [None]
  - CARDIAC FAILURE [None]
  - PAIN IN EXTREMITY [None]
  - OSTEOARTHRITIS [None]
  - FALL [None]
  - RESPIRATORY FAILURE [None]
  - THYROID DISORDER [None]
  - HAEMORRHAGE [None]
  - CHRONIC OBSTRUCTIVE PULMONARY DISEASE [None]
  - ONYCHOMYCOSIS [None]
  - FAT EMBOLISM [None]
  - BONE DISORDER [None]
